FAERS Safety Report 6750386-8 (Version None)
Quarter: 2010Q2

REPORT INFORMATION
  Report Type: 
  Country: None (occurrence: None)
  Receive Date: 20100601
  Receipt Date: 20100520
  Transmission Date: 20101027
  Serious: Yes (Hospitalization, Other)
  Sender: FDA-Public Use
  Company Number: US-AMGEN-QUU413744

PATIENT

DRUGS (1)
  1. ENBREL [Suspect]
     Route: 064
     Dates: end: 20100429

REACTIONS (2)
  - HYPOTHERMIA NEONATAL [None]
  - PREMATURE BABY [None]
